FAERS Safety Report 7067625-9 (Version None)
Quarter: 2010Q4

REPORT INFORMATION
  Report Type: 
  Country: None (occurrence: None)
  Receive Date: 20101028
  Receipt Date: 20101018
  Transmission Date: 20110411
  Serious: Yes (Hospitalization)
  Sender: FDA-Public Use
  Company Number: CA-NOVOPROD-316729

PATIENT
  Age: 54 Year
  Sex: Female

DRUGS (4)
  1. VICTOZA [Suspect]
     Indication: DIABETES MELLITUS
     Dosage: 1.2 UNK, QD
     Route: 058
     Dates: start: 20101001
  2. CRESTOR [Concomitant]
     Indication: BLOOD CHOLESTEROL
     Dosage: 10 MG, QD
     Route: 048
     Dates: start: 20060101
  3. METFORMIN [Concomitant]
     Indication: DIABETES MELLITUS
     Dosage: 500 MG, QD
     Route: 048
     Dates: start: 20060101
  4. WATER PILLS [Concomitant]
     Dosage: 12.5 MG, QD
     Route: 048
     Dates: start: 20060101

REACTIONS (1)
  - ABDOMINAL PAIN UPPER [None]
